FAERS Safety Report 7746502-1 (Version None)
Quarter: 2011Q3

REPORT INFORMATION
  Report Type: 
  Country: None (occurrence: None)
  Receive Date: 20110913
  Receipt Date: 20110823
  Transmission Date: 20111222
  Serious: Yes (Hospitalization, Other)
  Sender: FDA-Public Use
  Company Number: JP-PFIZER INC-2011207856

PATIENT
  Age: 79 Year
  Sex: Male

DRUGS (1)
  1. CELECOXIB [Suspect]
     Indication: BACK PAIN
     Dosage: UNK
     Dates: start: 20100804, end: 20110101

REACTIONS (2)
  - HUMAN HERPESVIRUS 6 INFECTION [None]
  - DRUG RASH WITH EOSINOPHILIA AND SYSTEMIC SYMPTOMS [None]
